APPROVED DRUG PRODUCT: ERYTHROMYCIN ETHYLSUCCINATE
Active Ingredient: ERYTHROMYCIN ETHYLSUCCINATE
Strength: EQ 200MG BASE/5ML
Dosage Form/Route: GRANULE;ORAL
Application: A216212 | Product #001 | TE Code: AB
Applicant: CADILA PHARMACEUTICALS LTD
Approved: Nov 21, 2022 | RLD: No | RS: No | Type: RX